FAERS Safety Report 13055835 (Version 1)
Quarter: 2016Q4

REPORT INFORMATION
  Report Type: Spontaneous
  Country: FR (occurrence: FR)
  Receive Date: 20161222
  Receipt Date: 20161222
  Transmission Date: 20170207
  Serious: Yes (Other)
  Sender: FDA-Public Use
  Company Number: FR-ABBVIE-16P-056-1819751-00

PATIENT
  Sex: Male

DRUGS (2)
  1. ENANTONE LP [Suspect]
     Active Substance: LEUPROLIDE ACETATE
     Dosage: UNK
     Route: 050
     Dates: start: 20161202
  2. ENANTONE LP [Suspect]
     Active Substance: LEUPROLIDE ACETATE
     Indication: PROSTATE CANCER
     Dosage: 30 MG, UNK
     Route: 050

REACTIONS (1)
  - Monoplegia [Recovered/Resolved]

NARRATIVE: CASE EVENT DATE: 20161202
